FAERS Safety Report 13230277 (Version 1)
Quarter: 2017Q1

REPORT INFORMATION
  Report Type: Report from Study
  Country: BR (occurrence: BR)
  Receive Date: 20170214
  Receipt Date: 20170214
  Transmission Date: 20170428
  Serious: Yes (Other)
  Sender: FDA-Public Use
  Company Number: PHHY2017BR022582

PATIENT
  Sex: Male
  Weight: 83 kg

DRUGS (1)
  1. EXELON PATCH [Suspect]
     Active Substance: RIVASTIGMINE
     Indication: MEMORY IMPAIRMENT
     Dosage: 4.6 MG, QD PATCH 5 (CM^2) (NIGHT)
     Route: 062
     Dates: start: 20160318

REACTIONS (3)
  - Application site pruritus [Recovering/Resolving]
  - Diabetes mellitus [Recovering/Resolving]
  - Hypersensitivity [Recovering/Resolving]
